FAERS Safety Report 4615357-6 (Version None)
Quarter: 2005Q1

REPORT INFORMATION
  Report Type: 
  Country: None (occurrence: None)
  Receive Date: 20050317
  Receipt Date: 20050308
  Transmission Date: 20050727
  Serious: No
  Sender: FDA-Public Use
  Company Number: 2005CG00421

PATIENT
  Age: 50 Year
  Sex: Male
  Weight: 93 kg

DRUGS (2)
  1. ATENOLOL [Suspect]
     Dosage: 50 MG BID PO
     Route: 048
  2. LESCOL [Suspect]
     Indication: HYPERCHOLESTEROLAEMIA
     Dosage: 80 MG DAILY PO
     Route: 048

REACTIONS (2)
  - ASTHENIA [None]
  - BLOOD CREATINE PHOSPHOKINASE INCREASED [None]
